FAERS Safety Report 25093957 (Version 1)
Quarter: 2025Q1

REPORT INFORMATION
  Report Type: Report from Study
  Country: ES (occurrence: ES)
  Receive Date: 20250319
  Receipt Date: 20250319
  Transmission Date: 20250409
  Serious: Yes (Hospitalization)
  Sender: AMNEAL
  Company Number: ES-AMNEAL PHARMACEUTICALS-2023-AMRX-04736

PATIENT

DRUGS (3)
  1. ONGENTYS [Suspect]
     Active Substance: OPICAPONE
     Indication: Parkinson^s disease
     Dosage: 50 MILLIGRAM, 1X/DAY
     Route: 065
     Dates: start: 20221202
  2. CARBIDOPA\LEVODOPA [Concomitant]
     Active Substance: CARBIDOPA\LEVODOPA
     Indication: Parkinson^s disease
     Dosage: 200/50 MG, FIVE TIMES DAILY ((TOTAL DAILY DOSE OF LEVODOPA: 1000 MG)
     Route: 065
     Dates: start: 20220811
  3. PRAMIPEXOLE DIHYDROCHLORIDE [Concomitant]
     Active Substance: PRAMIPEXOLE DIHYDROCHLORIDE
     Indication: Parkinson^s disease
     Dosage: 1.05 MG, ONCE DAILY
     Route: 065
     Dates: start: 20211130

REACTIONS (5)
  - Back pain [Recovering/Resolving]
  - Akinesia [Recovering/Resolving]
  - On and off phenomenon [Recovered/Resolved]
  - Arthralgia [Recovering/Resolving]
  - Dyskinesia [Not Recovered/Not Resolved]

NARRATIVE: CASE EVENT DATE: 20230215
